FAERS Safety Report 8962644 (Version 1)
Quarter: 2012Q4

REPORT INFORMATION
  Report Type: 
  Country: CO (occurrence: CO)
  Receive Date: 20121214
  Receipt Date: 20121214
  Transmission Date: 20130627
  Serious: Yes (Hospitalization)
  Sender: FDA-Public Use
  Company Number: PHHY2012CO114897

PATIENT
  Age: 76 Year
  Sex: Female
  Weight: 53 kg

DRUGS (5)
  1. ACLASTA [Suspect]
     Indication: OSTEOPOROSIS
     Dosage: 5 mg/100 ml, annual
     Route: 042
     Dates: start: 20121003
  2. WARFARIN [Concomitant]
  3. OMEPRAZOLE [Concomitant]
  4. AMIODARONE [Concomitant]
  5. NEBILET [Concomitant]

REACTIONS (4)
  - Eczema [Unknown]
  - Limb injury [Unknown]
  - Pruritus generalised [Unknown]
  - Erythema [Unknown]
